FAERS Safety Report 19906229 (Version 1)
Quarter: 2021Q3

REPORT INFORMATION
  Report Type: Spontaneous
  Country: US (occurrence: US)
  Receive Date: 20210930
  Receipt Date: 20210930
  Transmission Date: 20211014
  Serious: Yes (Death)
  Sender: FDA-Public Use
  Company Number: None

PATIENT
  Age: 65 Year
  Sex: Female

DRUGS (16)
  1. CYMBALTA 20MG CAPSULES [Concomitant]
  2. AMLODIPINE BESYLATE 10MG TABLETS [Concomitant]
     Active Substance: AMLODIPINE BESYLATE
  3. FLUOXETINE 10MG CAPSULES [Concomitant]
     Active Substance: FLUOXETINE HYDROCHLORIDE
  4. IPRATROPIUM INHAL SOLN 25 X 2.5ML [Concomitant]
  5. MULTIVITAMIN ADULTS TABLETS [Concomitant]
  6. BREO ELLIPTA 100?25MCG ORAL INH(30) [Concomitant]
  7. LORATADINE 10MG TABLETS [Concomitant]
  8. TUMS 500MG CHEWABLE TABS [Concomitant]
  9. REPATHA [Suspect]
     Active Substance: EVOLOCUMAB
     Route: 058
  10. ALBUTEROL HFA INH (200 PUFFS)8.5GMC [Concomitant]
  11. DIAZEPAM 5MG TABLETS [Concomitant]
     Active Substance: DIAZEPAM
  12. METFORMIN 500MG TABLETS [Concomitant]
     Active Substance: METFORMIN HYDROCHLORIDE
  13. NORCO 7.5/325 TABLETS [Concomitant]
  14. CHANTIX [Concomitant]
     Active Substance: VARENICLINE TARTRATE
  15. FLONASE 50MCG NAS SPRAY RX (120SPR) [Concomitant]
  16. METOPROLOL ER SUCCINATE 25MG TABS [Concomitant]

REACTIONS (1)
  - Death [None]
